FAERS Safety Report 9437878 (Version 1)
Quarter: 2013Q3

REPORT INFORMATION
  Report Type: Spontaneous
  Country: US (occurrence: US)
  Receive Date: 20130802
  Receipt Date: 20130802
  Transmission Date: 20140515
  Serious: Yes (Other)
  Sender: FDA-Public Use
  Company Number: US-BRISTOL-MYERS SQUIBB COMPANY-19152685

PATIENT
  Age: 39 Year
  Sex: Female
  Weight: 152 kg

DRUGS (1)
  1. ABATACEPT SUBQ INJECTION 125MG/ML [Suspect]
     Indication: RHEUMATOID ARTHRITIS
     Dosage: LAST INJ WAS 2WEEKS AGO
     Route: 058
     Dates: start: 20130520, end: 201307

REACTIONS (1)
  - Vaginal disorder [Unknown]
